FAERS Safety Report 24091488 (Version 1)
Quarter: 2024Q3

REPORT INFORMATION
  Report Type: Spontaneous
  Country: US (occurrence: US)
  Receive Date: 20240715
  Receipt Date: 20240715
  Transmission Date: 20241016
  Serious: Yes (Death)
  Sender: FRESENIUS KABI
  Company Number: US-FreseniusKabi-FK202410414

PATIENT
  Age: 34 Year
  Sex: Male

DRUGS (2)
  1. PROPOFOL [Suspect]
     Active Substance: PROPOFOL
     Indication: Sedation
     Dosage: ROUTE OF ADMIN: INTRAVENOUS
     Dates: start: 2019, end: 2019
  2. PROPOFOL [Suspect]
     Active Substance: PROPOFOL
     Indication: Seizure

REACTIONS (2)
  - Death [Fatal]
  - Off label use [Unknown]

NARRATIVE: CASE EVENT DATE: 20190101
